FAERS Safety Report 14676502 (Version 2)
Quarter: 2018Q1

REPORT INFORMATION
  Report Type: Spontaneous
  Country: CA (occurrence: CA)
  Receive Date: 20180323
  Receipt Date: 20180327
  Transmission Date: 20180509
  Serious: Yes (Other)
  Sender: FDA-Public Use
  Company Number: CA-ROCHE-2093782

PATIENT
  Age: 57 Year
  Sex: Female

DRUGS (10)
  1. SPIRIVA [Concomitant]
     Active Substance: TIOTROPIUM BROMIDE MONOHYDRATE
     Indication: ASTHMA
     Dosage: 2 DF, QD
     Route: 055
     Dates: start: 20180119
  2. SINGULAIR [Concomitant]
     Active Substance: MONTELUKAST SODIUM
     Indication: ASTHMA
     Dosage: 1 DF, QD
     Route: 048
     Dates: start: 2014
  3. PANTOLOC [Concomitant]
     Active Substance: PANTOPRAZOLE SODIUM
     Indication: GASTROOESOPHAGEAL REFLUX DISEASE
     Dosage: 1 DF, QD
     Route: 048
  4. ZOPLICONE [Concomitant]
     Active Substance: ZOPICLONE
     Indication: PRODUCT USED FOR UNKNOWN INDICATION
     Dosage: 1 DF, PRN
     Route: 048
     Dates: start: 2010
  5. XOLAIR [Suspect]
     Active Substance: OMALIZUMAB
     Indication: ASTHMA
     Dosage: 300 MG, EVERY 4 WEEKS
     Route: 058
     Dates: start: 20180312
  6. ZENHALE [Concomitant]
     Active Substance: FORMOTEROL FUMARATE\MOMETASONE FUROATE
     Indication: ASTHMA
     Dosage: 2 DF, QID
     Route: 055
     Dates: start: 2016
  7. VENTOLIN [Concomitant]
     Active Substance: ALBUTEROL SULFATE
     Indication: ASTHMA
     Dosage: 2 DF, PRN
     Route: 055
     Dates: start: 1993
  8. PREDNISONE. [Concomitant]
     Active Substance: PREDNISONE
     Indication: ASTHMA
     Route: 048
  9. TEMAZEPAM. [Concomitant]
     Active Substance: TEMAZEPAM
     Indication: PRODUCT USED FOR UNKNOWN INDICATION
     Dosage: 1 DF, PRN
     Route: 048
     Dates: start: 2010
  10. ATARAX [Concomitant]
     Active Substance: HYDROXYZINE HYDROCHLORIDE
     Indication: DERMATITIS ALLERGIC
     Dosage: 1 DF, PRN
     Route: 048

REACTIONS (4)
  - Blood pressure increased [Unknown]
  - Fatigue [Unknown]
  - Insomnia [Unknown]
  - Stress [Unknown]

NARRATIVE: CASE EVENT DATE: 20180312
